FAERS Safety Report 17808291 (Version 1)
Quarter: 2020Q2

REPORT INFORMATION
  Report Type: Spontaneous
  Country: FR (occurrence: FR)
  Receive Date: 20200520
  Receipt Date: 20200520
  Transmission Date: 20200714
  Serious: Yes (Hospitalization)
  Sender: FDA-Public Use
  Company Number: FR-MYLANLABS-2020M1048947

PATIENT
  Age: 73 Year
  Sex: Female

DRUGS (15)
  1. PANTOPRAZOLE [Concomitant]
     Active Substance: PANTOPRAZOLE
  2. MACROGOL 4000 [Concomitant]
     Active Substance: POLYETHYLENE GLYCOL 4000
  3. FLUCONAZOLE. [Suspect]
     Active Substance: FLUCONAZOLE
     Indication: OROPHARYNGEAL CANDIDIASIS
     Dosage: 100 MILLIGRAM, QD
     Route: 048
     Dates: end: 20200414
  4. MAG 2                              /00454301/ [Concomitant]
     Active Substance: MAGNESIUM CARBONATE
  5. SODIUM BICARBONATE. [Concomitant]
     Active Substance: SODIUM BICARBONATE
  6. BACTRIM [Interacting]
     Active Substance: SULFAMETHOXAZOLE\TRIMETHOPRIM
     Indication: ARTHRITIS BACTERIAL
     Dosage: 2 DOSAGE FORM, QD
     Route: 048
     Dates: start: 20200309
  7. LOVENOX [Concomitant]
     Active Substance: ENOXAPARIN SODIUM
  8. PRIMPERAN [Concomitant]
     Active Substance: METOCLOPRAMIDE HYDROCHLORIDE
  9. ACIDE FOLIQUE [Concomitant]
     Active Substance: FOLIC ACID
  10. ACTISKENAN [Concomitant]
     Active Substance: MORPHINE SULFATE
  11. FUNGIZONE [Concomitant]
     Active Substance: AMPHOTERICIN B
  12. DOLIPRANE [Concomitant]
     Active Substance: ACETAMINOPHEN
  13. SOLUPRED                           /00016217/ [Concomitant]
     Active Substance: PREDNISOLONE SODIUM METAZOATE
  14. LEVOTHYROX [Concomitant]
     Active Substance: LEVOTHYROXINE
  15. OFLOCET                            /00731801/ [Interacting]
     Active Substance: OFLOXACIN
     Indication: ARTHRITIS BACTERIAL
     Dosage: 3 DOSAGE FORM, QD
     Route: 048
     Dates: start: 20200322, end: 20200414

REACTIONS (2)
  - Epilepsy [Recovered/Resolved]
  - Drug interaction [Unknown]

NARRATIVE: CASE EVENT DATE: 20200414
